APPROVED DRUG PRODUCT: ROPINIROLE HYDROCHLORIDE
Active Ingredient: ROPINIROLE HYDROCHLORIDE
Strength: EQ 6MG BASE
Dosage Form/Route: TABLET, EXTENDED RELEASE;ORAL
Application: A204413 | Product #003 | TE Code: AB
Applicant: PRINSTON PHARMACEUTICAL INC
Approved: May 11, 2022 | RLD: No | RS: No | Type: RX